FAERS Safety Report 11310701 (Version 1)
Quarter: 2015Q3

REPORT INFORMATION
  Report Type: Spontaneous
  Country: US (occurrence: US)
  Receive Date: 20150725
  Receipt Date: 20150725
  Transmission Date: 20151125
  Serious: No
  Sender: FDA-Public Use
  Company Number: US-009507513-1507USA009790

PATIENT
  Sex: Female
  Weight: 57.14 kg

DRUGS (1)
  1. NEXPLANON [Suspect]
     Active Substance: ETONOGESTREL
     Dosage: UNK
     Dates: start: 20150623, end: 20150713

REACTIONS (3)
  - Implant site paraesthesia [Unknown]
  - Implant site pain [Unknown]
  - Headache [Unknown]

NARRATIVE: CASE EVENT DATE: 2015
